FAERS Safety Report 10025976 (Version 1)
Quarter: 2014Q1

REPORT INFORMATION
  Report Type: Spontaneous
  Country: GB (occurrence: None)
  Receive Date: 20140318
  Receipt Date: 20140318
  Transmission Date: 20141002
  Serious: Yes (Death)
  Sender: FDA-Public Use
  Company Number: 2014064485

PATIENT
  Age: 42 Year
  Sex: Female

DRUGS (1)
  1. FRAGMIN [Suspect]
     Indication: DEEP VEIN THROMBOSIS
     Dosage: 18000IU, 1X/DAY, SUBCUTANEOUS
     Route: 058

REACTIONS (1)
  - Heparin-induced thrombocytopenia [None]
